FAERS Safety Report 4543181-1 (Version None)
Quarter: 2005Q1

REPORT INFORMATION
  Report Type: 
  Country: None (occurrence: None)
  Receive Date: 20050103
  Receipt Date: 20041116
  Transmission Date: 20050727
  Serious: Yes (Death)
  Sender: FDA-Public Use
  Company Number: JP-JNJFOC-20041204798

PATIENT
  Age: 69 Year
  Sex: Male
  Weight: 54 kg

DRUGS (18)
  1. ITRACONAZOLE [Suspect]
     Indication: ANTIFUNGAL PROPHYLAXIS
  2. MICONAZOLE [Suspect]
     Indication: ANTIFUNGAL PROPHYLAXIS
     Route: 050
  3. WARFARIN [Interacting]
     Indication: PULMONARY INFARCTION
     Route: 050
  4. SULFAMETHOXAZOLE + TRIMETHOPRIM [Concomitant]
  5. SULFAMETHOXAZOLE + TRIMETHOPRIM [Concomitant]
  6. MINOCYCLINE HCL [Concomitant]
  7. PROPOFOL [Concomitant]
  8. HEPARIN [Concomitant]
  9. HEPARIN [Concomitant]
  10. HEPARIN [Concomitant]
  11. UROKINASE [Concomitant]
  12. ANTITHROMBIN III [Concomitant]
  13. RANITIDINE [Concomitant]
  14. SIVELESTAT [Concomitant]
  15. INSULIN [Concomitant]
  16. MICAFUNGIN [Concomitant]
  17. URSODEOXYCHOLATE [Concomitant]
     Indication: BILIARY TRACT DISORDER
  18. AMINOETHYLSULPHONATE [Concomitant]
     Indication: BILIARY TRACT DISORDER

REACTIONS (27)
  - ACTIVATED PARTIAL THROMBOPLASTIN TIME PROLONGED [None]
  - ANTITHROMBIN III DECREASED [None]
  - BILIRUBIN CONJUGATED INCREASED [None]
  - BLOOD ALBUMIN DECREASED [None]
  - BLOOD BILIRUBIN INCREASED [None]
  - BLOOD CHOLINESTERASE INCREASED [None]
  - CATHETER SITE HAEMORRHAGE [None]
  - DISSEMINATED INTRAVASCULAR COAGULATION [None]
  - DRUG HYPERSENSITIVITY [None]
  - DRUG INTERACTION [None]
  - ELECTROLYTE IMBALANCE [None]
  - GASTROINTESTINAL DISORDER [None]
  - HAEMATURIA [None]
  - HAEMOPTYSIS [None]
  - INTERNATIONAL NORMALISED RATIO INCREASED [None]
  - LABORATORY TEST ABNORMAL [None]
  - MALABSORPTION [None]
  - MULTI-ORGAN DISORDER [None]
  - MULTI-ORGAN FAILURE [None]
  - ORAL INTAKE REDUCED [None]
  - PLASMINOGEN DECREASED [None]
  - POST PROCEDURAL HAEMORRHAGE [None]
  - PULMONARY EMBOLISM [None]
  - RESPIRATORY FAILURE [None]
  - SEPTIC SHOCK [None]
  - THROMBOSIS [None]
  - VITAMIN K DEFICIENCY [None]
